FAERS Safety Report 11276977 (Version 1)
Quarter: 2015Q3

REPORT INFORMATION
  Report Type: Spontaneous
  Country: CN (occurrence: CN)
  Receive Date: 20150716
  Receipt Date: 20150716
  Transmission Date: 20151125
  Serious: Yes (Hospitalization, Other)
  Sender: FDA-Public Use
  Company Number: CN-GILEAD-2014-0112531

PATIENT
  Age: 27 Year
  Sex: Male

DRUGS (3)
  1. GLUTATHIONE [Concomitant]
     Active Substance: GLUTATHIONE
     Indication: CHRONIC HEPATITIS B
     Dosage: UNK
     Dates: start: 20140808
  2. VIREAD [Suspect]
     Active Substance: TENOFOVIR DISOPROXIL FUMARATE
     Indication: CHRONIC HEPATITIS B
     Dosage: 300 MG, UNK
     Route: 048
     Dates: start: 20140617, end: 20140820
  3. INTERFERON [Concomitant]
     Active Substance: INTERFERON
     Indication: CHRONIC HEPATITIS B
     Dosage: UNK
     Dates: start: 20140808

REACTIONS (5)
  - Duodenal ulcer [Unknown]
  - Hepatitis B [Unknown]
  - Blood creatine phosphokinase increased [Unknown]
  - Chronic gastritis [Unknown]
  - Blood creatine phosphokinase increased [Not Recovered/Not Resolved]

NARRATIVE: CASE EVENT DATE: 20140808
